FAERS Safety Report 8158201-5 (Version None)
Quarter: 2012Q1

REPORT INFORMATION
  Report Type: 
  Country: None (occurrence: None)
  Receive Date: 20120222
  Receipt Date: 20120209
  Transmission Date: 20120608
  Serious: Yes (Hospitalization)
  Sender: FDA-Public Use
  Company Number: SE-MYLANLABS-2012S1003204

PATIENT
  Age: 88 Year
  Sex: Female

DRUGS (5)
  1. GLIPIZIDE [Suspect]
     Indication: DIABETES MELLITUS
  2. MOVIPREP [Concomitant]
     Indication: PRODUCT USED FOR UNKNOWN INDICATION
  3. ENALAPRIL MALEATE [Suspect]
     Indication: HYPERTENSION
  4. SIMVASTATIN [Concomitant]
     Indication: PRODUCT USED FOR UNKNOWN INDICATION
  5. HYDROXOCOBALAMIN [Concomitant]
     Indication: PRODUCT USED FOR UNKNOWN INDICATION

REACTIONS (9)
  - ACIDOSIS [None]
  - PULMONARY OEDEMA [None]
  - MYOCARDIAL INFARCTION [None]
  - BLOOD CREATININE INCREASED [None]
  - PLEURAL EFFUSION [None]
  - LEFT VENTRICULAR HYPERTROPHY [None]
  - AORTIC STENOSIS [None]
  - BLOOD POTASSIUM INCREASED [None]
  - DYSPNOEA [None]
